FAERS Safety Report 16607092 (Version 1)
Quarter: 2019Q3

REPORT INFORMATION
  Report Type: Spontaneous
  Country: JP (occurrence: JP)
  Receive Date: 20190722
  Receipt Date: 20190722
  Transmission Date: 20191004
  Serious: Yes (Other)
  Sender: FDA-Public Use
  Company Number: JP-ALKEM LABORATORIES LIMITED-JP-ALKEM-2019-04093

PATIENT
  Age: 18 Year
  Sex: Female

DRUGS (5)
  1. TRIAMCINOLONE ACETONIDE. [Suspect]
     Active Substance: TRIAMCINOLONE ACETONIDE
     Dosage: 20 MILLIGRAM RIGHT EYE ON THE 34TH DAY
     Route: 031
  2. BETAMETHASONE. [Concomitant]
     Active Substance: BETAMETHASONE
     Indication: SERPIGINOUS CHOROIDITIS
     Dosage: 7 MILLIGRAM
     Route: 065
  3. ADALIMUMAB [Suspect]
     Active Substance: ADALIMUMAB
     Indication: SERPIGINOUS CHOROIDITIS
     Dosage: 80 MILLIGRAM ON THE 27TH DAY
     Route: 058
  4. CYCLOSPORINE. [Concomitant]
     Active Substance: CYCLOSPORINE
     Indication: SERPIGINOUS CHOROIDITIS
     Dosage: 300 MILLIGRAM
     Route: 048
  5. TRIAMCINOLONE ACETONIDE. [Suspect]
     Active Substance: TRIAMCINOLONE ACETONIDE
     Indication: SERPIGINOUS CHOROIDITIS
     Dosage: 20 MILLIGRAM LEFT EYE AND THEN TO THE RIGHT EYE
     Route: 031

REACTIONS (1)
  - Disease progression [Unknown]
